FAERS Safety Report 18720634 (Version 1)
Quarter: 2021Q1

REPORT INFORMATION
  Report Type: Other
  Country: US (occurrence: US)
  Receive Date: 20210109
  Receipt Date: 20210109
  Transmission Date: 20210419
  Serious: No
  Sender: FDA-Public Use
  Company Number: US-NAARI PTE LIMITED-2105154

PATIENT
  Age: 2 Decade
  Sex: Female

DRUGS (2)
  1. NORETHINDRONE AND ETHINYL ESTRADIOL [Suspect]
     Active Substance: ETHINYL ESTRADIOL\NORETHINDRONE
     Route: 048
     Dates: start: 201808
  2. DESOGESTREL AND ETHINYL ESTRADIOL [Suspect]
     Active Substance: DESOGESTREL\ETHINYL ESTRADIOL
     Indication: PFAPA SYNDROME
     Route: 048

REACTIONS (1)
  - Anxiety [Recovered/Resolved]
